FAERS Safety Report 14471338 (Version 1)
Quarter: 2018Q1

REPORT INFORMATION
  Report Type: Report from Study
  Country: US (occurrence: US)
  Receive Date: 20180131
  Receipt Date: 20180131
  Transmission Date: 20180509
  Serious: No
  Sender: FDA-Public Use
  Company Number: PHEH2018US003597

PATIENT
  Weight: 106 kg

DRUGS (1)
  1. OMNITROPE [Suspect]
     Active Substance: SOMATROPIN
     Indication: GROWTH HORMONE DEFICIENCY
     Dosage: 4.6 MG, QD
     Route: 058

REACTIONS (4)
  - Diarrhoea [Unknown]
  - Vomiting [Unknown]
  - Rash [Unknown]
  - Visual impairment [Unknown]
